FAERS Safety Report 10338612 (Version 2)
Quarter: 2014Q3

REPORT INFORMATION
  Report Type: Spontaneous
  Country: US (occurrence: US)
  Receive Date: 20140724
  Receipt Date: 20140724
  Transmission Date: 20150326
  Serious: No
  Sender: FDA-Public Use
  Company Number: US-UNITED THERAPEUTICS-UTC-046291

PATIENT
  Sex: Male
  Weight: 77.11 kg

DRUGS (3)
  1. ADCIRCA [Concomitant]
     Active Substance: TADALAFIL
  2. LETAIRIS [Concomitant]
     Active Substance: AMBRISENTAN
  3. REMODULIN [Suspect]
     Active Substance: TREPROSTINIL
     Dosage: 0.040 UG/KG/MIN
     Route: 058
     Dates: start: 20131227

REACTIONS (5)
  - Pain [Unknown]
  - Swelling [Unknown]
  - Paraesthesia [Unknown]
  - Nausea [Unknown]
  - Blister [Unknown]
